FAERS Safety Report 17355638 (Version 1)
Quarter: 2020Q1

REPORT INFORMATION
  Report Type: Spontaneous
  Country: US (occurrence: US)
  Receive Date: 20200131
  Receipt Date: 20200131
  Transmission Date: 20200409
  Serious: No
  Sender: FDA-Public Use
  Company Number: US-BRISTOL-MYERS SQUIBB COMPANY-BMS-2020-008063

PATIENT
  Age: 77 Year
  Sex: Male
  Weight: 87.08 kg

DRUGS (1)
  1. ELIQUIS [Suspect]
     Active Substance: APIXABAN
     Indication: HEART VALVE REPLACEMENT
     Dosage: 1 TAB, BID
     Route: 048
     Dates: start: 201904

REACTIONS (2)
  - Intentional product use issue [Unknown]
  - Balance disorder [Unknown]
